FAERS Safety Report 12274216 (Version 1)
Quarter: 2016Q2

REPORT INFORMATION
  Report Type: Spontaneous
  Country: US (occurrence: US)
  Receive Date: 20160415
  Receipt Date: 20160415
  Transmission Date: 20160815
  Serious: No
  Sender: FDA-Public Use
  Company Number: US-ALLERGAN-1509561US

PATIENT
  Sex: Female

DRUGS (2)
  1. LATISSE [Suspect]
     Active Substance: BIMATOPROST
     Dosage: 1 GTT EACH UPPER EYELID AT NIGHT
     Route: 061
  2. LATISSE [Suspect]
     Active Substance: BIMATOPROST
     Indication: PRODUCT USED FOR UNKNOWN INDICATION
     Dosage: 1 GTT EACH UPPER EYELID AT NIGHT
     Route: 061
     Dates: start: 201412

REACTIONS (2)
  - Conjunctivitis [Recovered/Resolved]
  - Drug ineffective [Unknown]
